APPROVED DRUG PRODUCT: FAYOSIM
Active Ingredient: ETHINYL ESTRADIOL; LEVONORGESTREL
Strength: 0.02MG,0.15MG;0.025MG,0.15MG;0.03MG,0.15MG;0.01MG,N/A
Dosage Form/Route: TABLET;ORAL
Application: A205943 | Product #001
Applicant: LUPIN LTD
Approved: Mar 29, 2016 | RLD: No | RS: No | Type: DISCN